FAERS Safety Report 6029335-6 (Version None)
Quarter: 2009Q1

REPORT INFORMATION
  Report Type: 
  Country: None (occurrence: None)
  Receive Date: 20090106
  Receipt Date: 20081230
  Transmission Date: 20090719
  Serious: Yes (Life-Threatening, Hospitalization, Disabling, Other)
  Sender: FDA-Public Use
  Company Number: US-GILEAD-2008-0019535

PATIENT
  Sex: Female

DRUGS (10)
  1. LETAIRIS [Suspect]
     Indication: PULMONARY ARTERIAL HYPERTENSION
     Route: 048
     Dates: start: 20080924
  2. LETAIRIS [Suspect]
     Indication: PERIPHERAL ISCHAEMIA
  3. OXYCONTIN [Concomitant]
     Indication: PAIN
     Route: 048
  4. HYDRDOXYCHLOROQUINE [Concomitant]
     Indication: SYSTEMIC LUPUS ERYTHEMATOSUS
     Route: 048
  5. OXYCODONE [Concomitant]
     Indication: PAIN
     Route: 048
  6. CYMBALTA [Concomitant]
     Indication: DEPRESSION
     Route: 048
  7. REVATIO [Concomitant]
     Indication: PERIPHERAL ISCHAEMIA
     Route: 048
  8. COLACE [Concomitant]
     Indication: CONSTIPATION
     Route: 048
  9. SENNA [Concomitant]
     Indication: CONSTIPATION
     Route: 048
  10. NIFEDICAL [Concomitant]
     Indication: PERIPHERAL ISCHAEMIA
     Route: 048

REACTIONS (3)
  - DYSPNOEA [None]
  - GANGRENE [None]
  - SCLERODERMA [None]
